FAERS Safety Report 4388311-X (Version None)
Quarter: 2004Q3

REPORT INFORMATION
  Report Type: 
  Country: None (occurrence: None)
  Receive Date: 20040701
  Receipt Date: 20030915
  Transmission Date: 20050211
  Serious: Yes (Life-Threatening, Hospitalization)
  Sender: FDA-Public Use
  Company Number: US-AMGEN-US047855

PATIENT
  Sex: Female
  Weight: 78 kg

DRUGS (22)
  1. ENBREL [Suspect]
     Indication: RHEUMATOID ARTHRITIS
     Route: 058
     Dates: start: 19990201, end: 20030101
  2. PREDNISONE [Suspect]
     Route: 048
     Dates: start: 19960222
  3. ARAVA [Concomitant]
     Route: 048
     Dates: start: 20020104, end: 20030313
  4. PLAQUENIL [Concomitant]
     Route: 048
     Dates: start: 19980117
  5. LASIX [Concomitant]
     Dates: start: 19980401
  6. LOVASTATIN [Concomitant]
     Dates: start: 20030401
  7. ISOSORBIDE [Concomitant]
     Dates: start: 19980401
  8. NORVASC [Concomitant]
     Dates: start: 19980401
  9. DIOCTYL SODIUM SULFOSUCCINATE [Concomitant]
     Dates: start: 20020901
  10. RELAFEN [Concomitant]
  11. TYLENOL W/ CODEINE NO. 3 [Concomitant]
     Dates: start: 19920326
  12. ZESTRIL [Concomitant]
     Dates: start: 19980401, end: 20030416
  13. LIVOSTIN [Concomitant]
     Route: 047
  14. PROTONIX [Concomitant]
     Dates: start: 20021201, end: 20030401
  15. NITROSTAT [Concomitant]
     Dates: start: 19980401
  16. OXYBUTYNIN [Concomitant]
     Dates: start: 19980401
  17. GLUCOPHAGE [Concomitant]
     Dates: start: 19960601
  18. GLUCOTROL [Concomitant]
  19. PREMARIN [Concomitant]
     Dates: start: 19911201
  20. ALLEGRA [Concomitant]
     Dates: start: 20010601
  21. CYCLOBENZAPRINE [Concomitant]
     Dates: start: 19911201
  22. RANITIDINE [Concomitant]
     Dates: start: 19911201

REACTIONS (12)
  - AORTIC VALVE SCLEROSIS [None]
  - AORTIC VALVE STENOSIS [None]
  - ASTHMA [None]
  - CORONARY ARTERY INSUFFICIENCY [None]
  - DIASTOLIC DYSFUNCTION [None]
  - DILATATION ATRIAL [None]
  - MITRAL VALVE CALCIFICATION [None]
  - MITRAL VALVE INCOMPETENCE [None]
  - NASOPHARYNGITIS [None]
  - PNEUMONIA [None]
  - TRICUSPID VALVE INCOMPETENCE [None]
  - VENTRICULAR HYPERTROPHY [None]
